FAERS Safety Report 9100606 (Version 5)
Quarter: 2013Q4

REPORT INFORMATION
  Report Type: Spontaneous
  Country: GB (occurrence: GB)
  Receive Date: 20130215
  Receipt Date: 20131203
  Transmission Date: 20140711
  Serious: Yes (Congenital Anomaly)
  Sender: FDA-Public Use
  Company Number: GB-JNJFOC-20130200410

PATIENT
  Sex: Male

DRUGS (12)
  1. HALOPERIDOL [Suspect]
     Indication: MATERNAL EXPOSURE BEFORE PREGNANCY
     Route: 064
  2. DROLEPTAN [Suspect]
     Indication: MATERNAL EXPOSURE BEFORE PREGNANCY
     Route: 064
  3. VALIUM [Suspect]
     Indication: MATERNAL EXPOSURE BEFORE PREGNANCY
     Route: 064
  4. SPARINE [Suspect]
     Indication: MATERNAL EXPOSURE BEFORE PREGNANCY
     Route: 064
  5. DEPIXOL [Suspect]
     Indication: MATERNAL EXPOSURE BEFORE PREGNANCY
     Route: 064
  6. UNKNOWN MEDICATION [Suspect]
     Indication: MATERNAL EXPOSURE BEFORE PREGNANCY
     Route: 050
  7. DISIPAL [Suspect]
     Indication: MATERNAL EXPOSURE BEFORE PREGNANCY
     Route: 064
  8. ISTIN [Suspect]
     Indication: MATERNAL EXPOSURE BEFORE PREGNANCY
     Route: 064
  9. KEMADRIN [Suspect]
     Indication: MATERNAL EXPOSURE BEFORE PREGNANCY
     Route: 064
  10. NORMAXIN [Suspect]
     Indication: MATERNAL EXPOSURE BEFORE PREGNANCY
     Route: 064
  11. RELACTON-C [Suspect]
     Indication: MATERNAL EXPOSURE BEFORE PREGNANCY
     Route: 064
  12. SURMONTIL [Suspect]
     Indication: MATERNAL EXPOSURE BEFORE PREGNANCY
     Route: 064

REACTIONS (2)
  - Learning disorder [Unknown]
  - Blindness transient [Recovered/Resolved]
